FAERS Safety Report 17000712 (Version 2)
Quarter: 2019Q4

REPORT INFORMATION
  Report Type: Report from Study
  Country: CL (occurrence: CL)
  Receive Date: 20191106
  Receipt Date: 20191223
  Transmission Date: 20200122
  Serious: Yes (Other)
  Sender: FDA-Public Use
  Company Number: PHHY2019CL079797

PATIENT
  Age: 59 Year
  Sex: Female

DRUGS (4)
  1. COSENTYX [Suspect]
     Active Substance: SECUKINUMAB
     Indication: PSORIATIC ARTHROPATHY
     Dosage: 150 MG, QW (FOR 6 WEEKS)
     Route: 058
     Dates: start: 20190222
  2. COSENTYX [Suspect]
     Active Substance: SECUKINUMAB
     Dosage: 150 MG, QW (FOR 6 WEEKS)
     Route: 058
     Dates: start: 20190322, end: 20190822
  3. COSENTYX [Suspect]
     Active Substance: SECUKINUMAB
     Dosage: UNK
     Route: 065
     Dates: start: 20191216
  4. COSENTYX [Suspect]
     Active Substance: SECUKINUMAB
     Indication: ANKYLOSING SPONDYLITIS
     Dosage: 150 MG, QW (FOR 6 WEEKS)
     Route: 058
     Dates: start: 20190215

REACTIONS (23)
  - Psoriatic arthropathy [Unknown]
  - Decreased immune responsiveness [Recovering/Resolving]
  - Injection site pain [Recovering/Resolving]
  - Pain [Not Recovered/Not Resolved]
  - Headache [Recovering/Resolving]
  - Nausea [Recovering/Resolving]
  - Pyrexia [Unknown]
  - Ankylosing spondylitis [Unknown]
  - Pain in extremity [Recovering/Resolving]
  - Feeling abnormal [Not Recovered/Not Resolved]
  - Decreased appetite [Recovering/Resolving]
  - Asthenia [Unknown]
  - Gastroenteritis viral [Recovered/Resolved with Sequelae]
  - Mobility decreased [Not Recovered/Not Resolved]
  - Colitis [Recovered/Resolved with Sequelae]
  - Malaise [Recovering/Resolving]
  - Back pain [Recovering/Resolving]
  - Dizziness [Recovering/Resolving]
  - Neck pain [Unknown]
  - Inappropriate schedule of product administration [Unknown]
  - Dental caries [Unknown]
  - Abdominal pain [Recovering/Resolving]
  - Insomnia [Unknown]

NARRATIVE: CASE EVENT DATE: 20190215
